FAERS Safety Report 12518288 (Version 3)
Quarter: 2016Q3

REPORT INFORMATION
  Report Type: Spontaneous
  Country: CH (occurrence: CH)
  Receive Date: 20160630
  Receipt Date: 20160810
  Transmission Date: 20161109
  Serious: Yes (Other)
  Sender: FDA-Public Use
  Company Number: CH-JNJFOC-20160622157

PATIENT
  Age: 6 Decade
  Sex: Male

DRUGS (2)
  1. NAPROXEN. [Concomitant]
     Active Substance: NAPROXEN
     Route: 048
     Dates: start: 20160701
  2. SIMPONI [Suspect]
     Active Substance: GOLIMUMAB
     Indication: SPONDYLOARTHROPATHY
     Route: 058
     Dates: start: 20141217, end: 2016

REACTIONS (3)
  - Off label use [Unknown]
  - Product use issue [Unknown]
  - Optic disc disorder [Unknown]

NARRATIVE: CASE EVENT DATE: 20141217
